FAERS Safety Report 6638339-1 (Version None)
Quarter: 2010Q1

REPORT INFORMATION
  Report Type: 
  Country: None (occurrence: None)
  Receive Date: 20100312
  Receipt Date: 20100303
  Transmission Date: 20100710
  Serious: Yes (Death)
  Sender: FDA-Public Use
  Company Number: CIP10000524

PATIENT
  Age: 69 Year
  Sex: Female

DRUGS (14)
  1. RISEDRONATE SODIUM [Suspect]
     Indication: OSTEOPOROSIS
     Dosage: 2.5 MG DAILY, ORAL
     Route: 048
     Dates: start: 20070101, end: 20080701
  2. LORFENAMIN (LOXOPROFEN SODIUM) [Concomitant]
  3. ASPARA-CA (ASPARTATE CALCIUM) [Concomitant]
  4. VONFENAC (DICLOFENAC SODIUM) [Concomitant]
  5. DIOVAN [Concomitant]
  6. CYTOTEC [Concomitant]
  7. SALIGREN (CEVIMELINE HYDROCHLORIDE) [Concomitant]
  8. ARAVA [Concomitant]
  9. NORVASC [Concomitant]
  10. CALFINA (ALFACALCIDOL) [Concomitant]
  11. CLIMAGEN ES (FAMOTIDINE) [Concomitant]
  12. MAGLAX (MAGNESIUM OXIDE) [Concomitant]
  13. LENDORM [Concomitant]
  14. PREDNISOLONE [Concomitant]

REACTIONS (2)
  - PNEUMONIA [None]
  - SUBARACHNOID HAEMORRHAGE [None]
